FAERS Safety Report 7607461-5 (Version None)
Quarter: 2011Q3

REPORT INFORMATION
  Report Type: 
  Country: None (occurrence: None)
  Receive Date: 20110713
  Receipt Date: 20110628
  Transmission Date: 20111222
  Serious: Yes (Death)
  Sender: FDA-Public Use
  Company Number: US-WATSON-2011-09659

PATIENT
  Sex: Male

DRUGS (1)
  1. FENTANYL-50 [Suspect]
     Indication: PRODUCT USED FOR UNKNOWN INDICATION
     Dosage: UNK
     Route: 062
     Dates: start: 20091201, end: 20091201

REACTIONS (1)
  - TOXICITY TO VARIOUS AGENTS [None]
